FAERS Safety Report 7327585-X (Version None)
Quarter: 2011Q1

REPORT INFORMATION
  Report Type: 
  Country: None (occurrence: None)
  Receive Date: 20110303
  Receipt Date: 20110223
  Transmission Date: 20110831
  Serious: No
  Sender: FDA-Public Use
  Company Number: US-BIOGENIDEC-2011BI007294

PATIENT
  Age: 38 Year
  Sex: Female

DRUGS (2)
  1. TYSABRI [Suspect]
     Indication: MULTIPLE SCLEROSIS
     Route: 042
     Dates: start: 20100714
  2. TYSABRI [Suspect]
     Route: 042
     Dates: start: 20091113, end: 20100312

REACTIONS (2)
  - MUSCULAR WEAKNESS [None]
  - BALANCE DISORDER [None]
